FAERS Safety Report 4918252-8 (Version None)
Quarter: 2006Q1

REPORT INFORMATION
  Report Type: 
  Country: None (occurrence: None)
  Receive Date: 20060214
  Receipt Date: 20060202
  Transmission Date: 20060701
  Serious: Yes (Hospitalization)
  Sender: FDA-Public Use
  Company Number: HQWYE646403FEB06

PATIENT
  Age: 5 Month
  Sex: Male

DRUGS (3)
  1. ADVIL [Suspect]
     Indication: EAR INFECTION
     Route: 048
     Dates: start: 20060121, end: 20060101
  2. ACETAMINOPHEN [Suspect]
     Indication: EAR INFECTION
  3. MAXILASE (AMYLASE, ) [Suspect]
     Indication: EAR INFECTION

REACTIONS (2)
  - DERMATITIS BULLOUS [None]
  - EPIDERMOLYSIS BULLOSA [None]
